FAERS Safety Report 22598739 (Version 1)
Quarter: 2023Q2

REPORT INFORMATION
  Report Type: Report from Study
  Country: EG (occurrence: EG)
  Receive Date: 20230614
  Receipt Date: 20230614
  Transmission Date: 20230722
  Serious: Yes (Death, Hospitalization)
  Sender: FDA-Public Use
  Company Number: EG-002147023-NVSC2023EG135294

PATIENT
  Sex: Female

DRUGS (2)
  1. ENTRESTO [Suspect]
     Active Substance: SACUBITRIL\VALSARTAN
     Indication: Cardiac failure
     Dosage: 1 DOSAGE FORM, BID (STARTED ON 2019 OR 2020)
     Route: 048
  2. ENTRESTO [Suspect]
     Active Substance: SACUBITRIL\VALSARTAN
     Dosage: 0.5 DOSAGE FORM, BID
     Route: 048
     Dates: start: 2022, end: 20230314

REACTIONS (6)
  - Sepsis [Fatal]
  - Gastrointestinal gangrene [Fatal]
  - Constipation [Fatal]
  - Renal impairment [Fatal]
  - Underdose [Recovered/Resolved]
  - Wrong technique in product usage process [Recovered/Resolved]

NARRATIVE: CASE EVENT DATE: 20220101
